FAERS Safety Report 10202037 (Version 3)
Quarter: 2014Q2

REPORT INFORMATION
  Report Type: Spontaneous
  Country: CA (occurrence: CA)
  Receive Date: 20140528
  Receipt Date: 20140618
  Transmission Date: 20141212
  Serious: Yes (Hospitalization)
  Sender: FDA-Public Use
  Company Number: CA-GLAXOSMITHKLINE-A1073203A

PATIENT
  Age: 53 Year
  Sex: Female

DRUGS (3)
  1. TAFINLAR [Suspect]
     Indication: METASTATIC MALIGNANT MELANOMA
     Dosage: 150MG TWICE PER DAY
     Route: 065
  2. INSULIN [Concomitant]
  3. METFORMIN [Concomitant]

REACTIONS (12)
  - Nausea [Unknown]
  - Blood glucose increased [Unknown]
  - Hypoglycaemia [Unknown]
  - Faeces soft [Unknown]
  - Hyperglycaemia [Unknown]
  - Blood glucose decreased [Unknown]
  - Acrochordon [Unknown]
  - Fatigue [Unknown]
  - Headache [Unknown]
  - Myalgia [Unknown]
  - Chills [Unknown]
  - Pyrexia [Unknown]
